FAERS Safety Report 19853794 (Version 1)
Quarter: 2021Q3

REPORT INFORMATION
  Report Type: Spontaneous
  Country: US (occurrence: US)
  Receive Date: 20210920
  Receipt Date: 20210920
  Transmission Date: 20211014
  Serious: No
  Sender: FDA-Public Use
  Company Number: US-SA-2021SA305686

PATIENT
  Sex: Male

DRUGS (12)
  1. GLIMEPIRIDE. [Concomitant]
     Active Substance: GLIMEPIRIDE
  2. DULOXETINE. [Concomitant]
     Active Substance: DULOXETINE
  3. ONDANSETRON [Concomitant]
     Active Substance: ONDANSETRON
  4. ROSUVASTATIN. [Concomitant]
     Active Substance: ROSUVASTATIN
  5. DUPIXENT [Suspect]
     Active Substance: DUPILUMAB
     Indication: DERMATITIS ATOPIC
     Route: 058
     Dates: start: 20190809
  6. METFORMIN [Concomitant]
     Active Substance: METFORMIN HYDROCHLORIDE
  7. ALBUTEROL HFA [Concomitant]
     Active Substance: ALBUTEROL SULFATE
  8. MELOXICAM. [Concomitant]
     Active Substance: MELOXICAM
  9. TRULICITY [Concomitant]
     Active Substance: DULAGLUTIDE
  10. OMEPRAZOLE. [Concomitant]
     Active Substance: OMEPRAZOLE
  11. AMLODIPINE [Concomitant]
     Active Substance: AMLODIPINE BESYLATE
  12. METOPROLOL SUCCINATE. [Concomitant]
     Active Substance: METOPROLOL SUCCINATE

REACTIONS (3)
  - SARS-CoV-2 test positive [Not Recovered/Not Resolved]
  - Product dose omission issue [Unknown]
  - COVID-19 [Not Recovered/Not Resolved]
